FAERS Safety Report 23168193 (Version 2)
Quarter: 2024Q1

REPORT INFORMATION
  Report Type: Report from Study
  Country: US (occurrence: US)
  Receive Date: 20231109
  Receipt Date: 20240109
  Transmission Date: 20240410
  Serious: Yes (Other)
  Sender: FDA-Public Use
  Company Number: US-ABBVIE-5364137

PATIENT
  Age: 70 Year
  Sex: Female
  Weight: 133.8 kg

DRUGS (1)
  1. SKYRIZI [Suspect]
     Active Substance: RISANKIZUMAB-RZAA
     Indication: Psoriasis
     Route: 058
     Dates: start: 20210430

REACTIONS (3)
  - Cardiac pacemaker insertion [Recovered/Resolved]
  - Psoriasis [Unknown]
  - Stress [Unknown]

NARRATIVE: CASE EVENT DATE: 20230601
